FAERS Safety Report 9770341 (Version 4)
Quarter: 2014Q1

REPORT INFORMATION
  Report Type: Spontaneous
  Country: JP (occurrence: JP)
  Receive Date: 20131218
  Receipt Date: 20140326
  Transmission Date: 20141002
  Serious: Yes (Death, Hospitalization, Other)
  Sender: FDA-Public Use
  Company Number: JP-BAYER-2013-154186

PATIENT
  Age: 62 Year
  Sex: Male

DRUGS (5)
  1. STIVARGA [Suspect]
     Indication: GASTROINTESTINAL STROMAL TUMOUR
     Dosage: 160 MG, QD
     Route: 048
     Dates: start: 20131008, end: 20131028
  2. STIVARGA [Suspect]
     Indication: GASTROINTESTINAL STROMAL TUMOUR
     Dosage: 160 MG, QD
     Route: 048
     Dates: start: 20131107, end: 20131113
  3. LASIX [Concomitant]
     Dosage: 20 MG, BID
     Route: 048
  4. ALDACTONE A [Concomitant]
     Dosage: 25 MG, BID
     Route: 048
  5. MIYA BM [Concomitant]
     Dosage: DAILY DOSE 3 DF
     Route: 048

REACTIONS (3)
  - Hypoglycaemia [Unknown]
  - Hepatic failure [Not Recovered/Not Resolved]
  - Gastrointestinal stromal tumour [Fatal]
